FAERS Safety Report 4832106-7 (Version None)
Quarter: 2005Q4

REPORT INFORMATION
  Report Type: 
  Country: None (occurrence: None)
  Receive Date: 20051116
  Receipt Date: 20051108
  Transmission Date: 20060501
  Serious: Yes (Death)
  Sender: FDA-Public Use
  Company Number: 2005JP001585

PATIENT
  Age: 50 Year
  Sex: Male

DRUGS (3)
  1. FUNGUARD (MICAFUNGIN) INJECTION [Suspect]
     Indication: CANDIDA SEPSIS
     Dosage: 100.00 UID/QD, IV DRIP
     Route: 041
     Dates: start: 20050726, end: 20050731
  2. FLUMARIN (FLOMOXEF SODIUM) INJECTION [Suspect]
     Indication: CATHETER RELATED INFECTION
     Dosage: 1033 G, BID, IV DRIP
     Route: 041
     Dates: start: 20050724, end: 20050731
  3. PREDNISOLONE [Concomitant]

REACTIONS (4)
  - DIALYSIS [None]
  - PNEUMONIA [None]
  - RENAL FAILURE ACUTE [None]
  - SHUNT INFECTION [None]
